FAERS Safety Report 6825365-2 (Version None)
Quarter: 2010Q3

REPORT INFORMATION
  Report Type: 
  Country: None (occurrence: None)
  Receive Date: 20100708
  Receipt Date: 20061201
  Transmission Date: 20110219
  Serious: No
  Sender: FDA-Public Use
  Company Number: US-PFIZER INC-2006151867

PATIENT
  Age: 47 Year
  Sex: Male
  Weight: 104.33 kg

DRUGS (2)
  1. CHANTIX [Suspect]
     Indication: SMOKING CESSATION THERAPY
     Dates: start: 20060101
  2. TYLENOL PM [Suspect]
     Indication: INSOMNIA
     Dates: start: 20060101, end: 20060101

REACTIONS (4)
  - ABDOMINAL PAIN UPPER [None]
  - HEART RATE INCREASED [None]
  - NAUSEA [None]
  - PROSTATIC DISORDER [None]
